FAERS Safety Report 5885589-8 (Version None)
Quarter: 2008Q3

REPORT INFORMATION
  Report Type: 
  Country: None (occurrence: None)
  Receive Date: 20080916
  Receipt Date: 20080909
  Transmission Date: 20090109
  Serious: Yes (Other)
  Sender: FDA-Public Use
  Company Number: US-ALLERGAN-0811370US

PATIENT
  Age: 59 Year
  Sex: Female

DRUGS (6)
  1. BOTOX COSMETIC [Suspect]
     Indication: SKIN WRINKLING
     Dosage: 12 UNITS, SINGLE
     Route: 030
     Dates: start: 20071214, end: 20071214
  2. BOTOX COSMETIC [Suspect]
     Dosage: 25 UNITS, SINGLE
     Dates: start: 20071207, end: 20071207
  3. BOTOX COSMETIC [Suspect]
     Dosage: 50 UNITS, SINGLE
     Dates: start: 20071130, end: 20071130
  4. JUVEDERM ULTRA PLUS [Suspect]
     Indication: SKIN WRINKLING
     Dosage: UNK, SINGLE
     Dates: start: 20071214, end: 20071214
  5. LIDOCAINE W/PRILOCAINE [Suspect]
     Dosage: UNK, SINGLE
     Route: 061
     Dates: start: 20071214, end: 20071214
  6. ESTRACE [Concomitant]
     Indication: HORMONE REPLACEMENT THERAPY
     Dosage: UNK, QD

REACTIONS (6)
  - ECCHYMOSIS [None]
  - ERYTHEMA [None]
  - FACE OEDEMA [None]
  - HAEMATOMA [None]
  - HYPERSENSITIVITY [None]
  - PHARYNGEAL OEDEMA [None]
